FAERS Safety Report 7397164-7 (Version None)
Quarter: 2011Q2

REPORT INFORMATION
  Report Type: 
  Country: None (occurrence: None)
  Receive Date: 20110406
  Receipt Date: 20110331
  Transmission Date: 20111010
  Serious: Yes (Disabling)
  Sender: FDA-Public Use
  Company Number: B0710770A

PATIENT
  Sex: Female
  Weight: 15.3 kg

DRUGS (12)
  1. URSO 250 [Concomitant]
     Dosage: 150MG PER DAY
     Route: 048
  2. GRANISETRON HCL [Concomitant]
     Dosage: 1.2MG PER DAY
     Route: 042
     Dates: end: 20080207
  3. PREDONINE [Concomitant]
     Indication: IMMUNOSUPPRESSION
     Dosage: 15MG PER DAY
     Route: 065
     Dates: start: 20081126
  4. VICCLOX [Concomitant]
     Dosage: 2.8ML PER DAY
     Route: 042
     Dates: end: 20080222
  5. FUNGUARD [Concomitant]
     Dosage: 50MG PER DAY
     Route: 042
     Dates: end: 20080310
  6. CYCLOSPORINE [Concomitant]
     Indication: IMMUNOSUPPRESSION
     Dosage: 21MG PER DAY
     Route: 065
     Dates: start: 20080116, end: 20080128
  7. PRODIF [Concomitant]
     Dosage: 1.9ML PER DAY
     Route: 042
     Dates: end: 20080121
  8. GASTER [Concomitant]
     Dosage: 6MG PER DAY
     Route: 042
  9. FLUDARABINE PHOSPHATE [Suspect]
     Indication: CORD BLOOD TRANSPLANT THERAPY
     Dosage: 25MGM2 PER DAY
     Route: 042
     Dates: start: 20080111, end: 20080115
  10. BIOFERMIN R [Concomitant]
     Dosage: 3IUAX PER DAY
     Route: 048
  11. ALKERAN [Suspect]
     Indication: CORD BLOOD TRANSPLANT THERAPY
     Dosage: 40MGM2 PER DAY
     Route: 042
     Dates: start: 20080112, end: 20080113
  12. ATARAX [Concomitant]
     Route: 042
     Dates: start: 20080113

REACTIONS (7)
  - LIVER DISORDER [None]
  - ALANINE AMINOTRANSFERASE INCREASED [None]
  - BLOOD LACTATE DEHYDROGENASE INCREASED [None]
  - ASPARTATE AMINOTRANSFERASE INCREASED [None]
  - DIARRHOEA [None]
  - PYREXIA [None]
  - C-REACTIVE PROTEIN INCREASED [None]
